FAERS Safety Report 17620804 (Version 1)
Quarter: 2020Q2

REPORT INFORMATION
  Report Type: Spontaneous
  Country: CN (occurrence: CN)
  Receive Date: 20200403
  Receipt Date: 20200403
  Transmission Date: 20200713
  Serious: Yes (Hospitalization)
  Sender: FDA-Public Use
  Company Number: CN-BAXTER-2020BAX006851

PATIENT
  Age: 33 Year
  Sex: Female
  Weight: 45 kg

DRUGS (12)
  1. ENDOXAN [Suspect]
     Active Substance: CYCLOPHOSPHAMIDE
     Dosage: SECOND CYCLE, ENDOXAN INJECTION 900 MG + 0.9% SODIUM CHLORIDE INJECTION 100 ML
     Route: 041
     Dates: start: 20200228, end: 20200228
  2. STERILE WATER [Suspect]
     Active Substance: WATER
     Indication: MEDICATION DILUTION
     Dosage: FIRST CYCLE, DOXORUBICIN HYDROCHLORIDE INJECTION + STERILE WATER FOR INJECTION
     Route: 041
  3. STERILE WATER [Suspect]
     Active Substance: WATER
     Dosage: THIRD CYCLE, DOSE ADJUSTED TO 80% OF ORIGINAL REGIMEN, DOXORUBICIN + STERILE WATER FOR INJECTION
     Route: 041
     Dates: start: 20200313
  4. DOXORUBICIN HYDROCHLORIDE. [Suspect]
     Active Substance: DOXORUBICIN HYDROCHLORIDE
     Dosage: THIRD CYCLE, DOSE ADJUSTED TO 80% OF ORIGINAL REGIMEN, DOXORUBICIN + STERILE WATER FOR INJECTION
     Route: 041
     Dates: start: 20200313
  5. 0.9% SODIUM CHLORIDE INJECTION [Suspect]
     Active Substance: SODIUM CHLORIDE
     Dosage: SECOND CYCLE, ENDOXAN INJECTION 900 MG + 0.9% SODIUM CHLORIDE INJECTION 100 ML
     Route: 041
     Dates: start: 20200228, end: 20200228
  6. STERILE WATER [Suspect]
     Active Substance: WATER
     Dosage: SECOND CYCLE, DOXORUBICIN HYDROCHLORIDE FOR INJECTION 90 MG + STERILE WATER FOR INJECTION 50ML
     Route: 041
     Dates: start: 20200228, end: 20200228
  7. DOXORUBICIN HYDROCHLORIDE. [Suspect]
     Active Substance: DOXORUBICIN HYDROCHLORIDE
     Indication: MEDULLARY CARCINOMA OF BREAST
     Dosage: FIRST CYCLE, DOXORUBICIN HYDROCHLORIDE INJECTION + STERILE WATER FOR INJECTION
     Route: 041
  8. ENDOXAN [Suspect]
     Active Substance: CYCLOPHOSPHAMIDE
     Indication: MEDULLARY CARCINOMA OF BREAST
     Dosage: FIRST CYCLE, ENDOXAN INJECTION + 0.9% SODIUM CHLORIDE INJECTION
     Route: 041
  9. ENDOXAN [Suspect]
     Active Substance: CYCLOPHOSPHAMIDE
     Dosage: THIRD CYCLE, DOSE ADJUSTED TO 80% OF ORIGINAL REGIMEN, ENDOXAN +0.9% SODIUM CHLORIDE INJECTION
     Route: 041
     Dates: start: 20200313
  10. 0.9% SODIUM CHLORIDE INJECTION [Suspect]
     Active Substance: SODIUM CHLORIDE
     Indication: MEDICATION DILUTION
     Dosage: FIRST CYCLE, ENDOXAN INJECTION + 0.9% SODIUM CHLORIDE INJECTION
     Route: 041
  11. 0.9% SODIUM CHLORIDE INJECTION [Suspect]
     Active Substance: SODIUM CHLORIDE
     Dosage: THIRD CYCLE, DOSE ADJUSTED TO 80% OF ORIGINAL REGIMEN, ENDOXAN +0.9% SODIUM CHLORIDE INJECTION
     Route: 041
     Dates: start: 20200313
  12. DOXORUBICIN HYDROCHLORIDE. [Suspect]
     Active Substance: DOXORUBICIN HYDROCHLORIDE
     Dosage: SECOND CYCLE, DOXORUBICIN HYDROCHLORIDE FOR INJECTION 90 MG + STERILE WATER FOR INJECTION 50ML
     Route: 041
     Dates: start: 20200228, end: 20200228

REACTIONS (2)
  - Pancytopenia [Recovering/Resolving]
  - Pyrexia [Recovered/Resolved]

NARRATIVE: CASE EVENT DATE: 20200307
